FAERS Safety Report 21795295 (Version 1)
Quarter: 2022Q4

REPORT INFORMATION
  Report Type: Report from Study
  Country: US (occurrence: US)
  Receive Date: 20221229
  Receipt Date: 20221229
  Transmission Date: 20230112
  Serious: No
  Sender: FDA-Public Use
  Company Number: US-ABBVIE-4217372

PATIENT
  Sex: Female

DRUGS (1)
  1. HUMIRA [Suspect]
     Active Substance: ADALIMUMAB
     Indication: Product used for unknown indication
     Dosage: THE ONSET DATE FOR EVENT NOT FEELING WELL WAS NOV 2022.
     Route: 058
     Dates: start: 20221126

REACTIONS (1)
  - Malaise [Recovering/Resolving]
